FAERS Safety Report 10010571 (Version 1)
Quarter: 2014Q1

REPORT INFORMATION
  Report Type: Spontaneous
  Country: US (occurrence: US)
  Receive Date: 20140314
  Receipt Date: 20140314
  Transmission Date: 20141002
  Serious: No
  Sender: FDA-Public Use
  Company Number: US-SHIRE-US201400484

PATIENT
  Sex: 0

DRUGS (3)
  1. LIALDA [Suspect]
     Indication: COLITIS
     Dosage: 4.8 G, 1X/DAY:QD (FOUR 1.2 G TABLETS)
     Route: 048
     Dates: start: 2014
  2. CANASA [Concomitant]
     Indication: COLITIS
     Dosage: 1000 MG, 1X/DAY:QD
     Route: 054
     Dates: start: 1994
  3. ADVAIR [Concomitant]
     Indication: ASTHMA
     Dosage: UNK UNK, 1X/DAY:QD (250/50)
     Route: 055
     Dates: start: 2009

REACTIONS (1)
  - Colitis [Not Recovered/Not Resolved]
